FAERS Safety Report 4531190-8 (Version None)
Quarter: 2004Q4

REPORT INFORMATION
  Report Type: 
  Country: None (occurrence: None)
  Receive Date: 20041206
  Receipt Date: 20040831
  Transmission Date: 20050328
  Serious: No
  Sender: FDA-Public Use
  Company Number: USA040876993

PATIENT
  Age: 46 Year
  Sex: Female

DRUGS (6)
  1. PROZAC [Suspect]
     Indication: DEPRESSION
     Dosage: 60 MG
  2. CYMBALTA [Suspect]
  3. TRAZODONE HCL [Concomitant]
  4. REMERON [Concomitant]
  5. ZOLOFT [Concomitant]
  6. CONCERTA [Concomitant]

REACTIONS (1)
  - DRUG INEFFECTIVE [None]
